FAERS Safety Report 4471515-5 (Version None)
Quarter: 2004Q4

REPORT INFORMATION
  Report Type: 
  Country: None (occurrence: None)
  Receive Date: 20041012
  Receipt Date: 20040930
  Transmission Date: 20050328
  Serious: Yes (Hospitalization)
  Sender: FDA-Public Use
  Company Number: PHNU2004DE03380

PATIENT
  Age: 75 Year
  Sex: Male
  Weight: 70 kg

DRUGS (12)
  1. FORADIL [Suspect]
     Indication: CHRONIC OBSTRUCTIVE AIRWAYS DISEASE
     Dosage: 2 PUFFS/DAY
     Dates: start: 20030101
  2. BERODUAL [Suspect]
     Indication: CHRONIC OBSTRUCTIVE AIRWAYS DISEASE
     Dosage: UP TO 15 PUFFS/DAY
     Dates: start: 20000101
  3. EUPHYLONG [Suspect]
     Indication: CHRONIC OBSTRUCTIVE AIRWAYS DISEASE
     Dosage: 375 MG, BID
     Route: 048
     Dates: start: 20000101, end: 20040703
  4. ALLOPURINOL [Concomitant]
     Indication: HYPERURICAEMIA
     Dosage: 300 MG/DAY
     Route: 048
     Dates: start: 19970101
  5. CYLCLOCAPS [Concomitant]
     Indication: CHRONIC OBSTRUCTIVE AIRWAYS DISEASE
     Dosage: 200 MG, BID
     Route: 048
     Dates: start: 20040101
  6. DIGITOXIN [Concomitant]
     Indication: ATRIAL FIBRILLATION
     Dosage: .07 MG, QD
     Route: 048
     Dates: start: 20000101, end: 20040703
  7. FALICARD ^ASTA MEDICA^ [Concomitant]
     Indication: HYPERTENSION
     Dosage: 240 MG, BID
     Route: 048
     Dates: start: 19990101
  8. FALITHROM ^HEXAL^ [Concomitant]
     Indication: THROMBOSIS PROPHYLAXIS
     Dosage: 1.5 MG, QD
     Route: 048
     Dates: start: 20020101
  9. JENACARD [Concomitant]
     Indication: ISCHAEMIC HEART DISEASE PROPHYLAXIS
     Dosage: 20 MG, QD
     Route: 048
     Dates: start: 20000101
  10. LISODURA [Concomitant]
     Indication: HYPERTENSION
     Dosage: 10 MG, QD
     Route: 048
     Dates: start: 19970101
  11. SORTIS ^PARKE DAVIS^ [Concomitant]
     Indication: HYPERLIPIDAEMIA
     Dosage: 10 MG, QD
     Route: 048
     Dates: start: 20000101
  12. THEOPHYLLINE [Suspect]
     Indication: CHRONIC OBSTRUCTIVE AIRWAYS DISEASE
     Dosage: UNKNOWN
     Dates: start: 20040101, end: 20040701

REACTIONS (6)
  - CHRONIC OBSTRUCTIVE AIRWAYS DISEASE [None]
  - DISEASE PROGRESSION [None]
  - DRUG INTERACTION [None]
  - DRUG LEVEL INCREASED [None]
  - HYPOTENSION [None]
  - TACHYARRHYTHMIA [None]
